FAERS Safety Report 24603693 (Version 1)
Quarter: 2024Q4

REPORT INFORMATION
  Report Type: Spontaneous
  Country: US (occurrence: None)
  Receive Date: 20241110
  Receipt Date: 20241110
  Transmission Date: 20250114
  Serious: Yes (Life-Threatening, Disabling, Other)
  Sender: Public
  Company Number: None

PATIENT
  Age: 72 Year
  Sex: Male
  Weight: 80.1 kg

DRUGS (9)
  1. EOVIST [Suspect]
     Active Substance: GADOXETATE DISODIUM
     Route: 042
     Dates: start: 20160101, end: 20240808
  2. PANTOPRAZOLE [Concomitant]
     Active Substance: PANTOPRAZOLE
  3. CALCIUM [Concomitant]
     Active Substance: CALCIUM
  4. MIRTAZAPINE [Concomitant]
     Active Substance: MIRTAZAPINE
  5. MELATONIN [Concomitant]
     Active Substance: MELATONIN
  6. VITAMIN D3 [Concomitant]
     Active Substance: CHOLECALCIFEROL
  7. RED YEAST RICE [Concomitant]
  8. JWH-018 [Concomitant]
     Active Substance: JWH-018
  9. VITAMIN D3 [Concomitant]
     Active Substance: CHOLECALCIFEROL

REACTIONS (2)
  - Hallucination, auditory [None]
  - Fear [None]

NARRATIVE: CASE EVENT DATE: 20240207
